FAERS Safety Report 12476435 (Version 1)
Quarter: 2016Q2

REPORT INFORMATION
  Report Type: Report from Study
  Country: BR (occurrence: BR)
  Receive Date: 20160617
  Receipt Date: 20160617
  Transmission Date: 20160815
  Serious: Yes (Other)
  Sender: FDA-Public Use
  Company Number: BR-BIOGEN-2015BI042979

PATIENT
  Sex: Female
  Weight: 56 kg

DRUGS (6)
  1. PARACETAMOL [Concomitant]
     Active Substance: ACETAMINOPHEN
     Indication: PRODUCT USED FOR UNKNOWN INDICATION
     Route: 065
  2. CLONAZEPAM. [Concomitant]
     Active Substance: CLONAZEPAM
     Indication: POOR QUALITY SLEEP
     Dosage: PRESCRIBED AT MORNING AND NIGHT, BUT PATIENT ASKED TO TAKE ONLY AT NIGHT; UNKNOWN IF TAKEN ONLY AT N
     Route: 065
  3. TYSABRI [Suspect]
     Active Substance: NATALIZUMAB
     Indication: MULTIPLE SCLEROSIS
     Route: 042
     Dates: start: 201407, end: 201410
  4. DEPURA [Concomitant]
     Active Substance: CHOLECALCIFEROL
     Dosage: DOSAGE WAS REDUCED FROM 30 DROPS TO 20 DROPS
     Route: 065
  5. DEPURA [Concomitant]
     Active Substance: CHOLECALCIFEROL
     Indication: PRODUCT USED FOR UNKNOWN INDICATION
     Dosage: 30  DROPS
     Route: 065
  6. BACLOFEN. [Concomitant]
     Active Substance: BACLOFEN
     Indication: MUSCLE SPASMS
     Route: 065

REACTIONS (7)
  - Eye infection [Recovered/Resolved]
  - Weight decreased [Not Recovered/Not Resolved]
  - Blindness unilateral [Not Recovered/Not Resolved]
  - Gait disturbance [Unknown]
  - Blindness [Recovered/Resolved]
  - Arthropathy [Unknown]
  - Weight increased [Recovered/Resolved]
